FAERS Safety Report 9651686 (Version 1)
Quarter: 2013Q4

REPORT INFORMATION
  Report Type: Spontaneous
  Country: US (occurrence: US)
  Receive Date: 20131029
  Receipt Date: 20131029
  Transmission Date: 20140711
  Serious: No
  Sender: FDA-Public Use
  Company Number: US-BIOGENIDEC-2013BI073981

PATIENT
  Age: 62 Year
  Sex: Female

DRUGS (8)
  1. TECFIDERA [Suspect]
     Indication: MULTIPLE SCLEROSIS
     Route: 048
  2. ASPIRIN [Concomitant]
  3. CALCIUM WITH VITAMIN D [Concomitant]
  4. OSTEO BI FLEX [Concomitant]
  5. TRAMADOL [Concomitant]
  6. LASIX [Concomitant]
  7. HYDROCODONE [Concomitant]
  8. POTASSIUM [Concomitant]

REACTIONS (3)
  - Nausea [Not Recovered/Not Resolved]
  - Diarrhoea [Not Recovered/Not Resolved]
  - Pruritus [Not Recovered/Not Resolved]
